FAERS Safety Report 5119936-1 (Version None)
Quarter: 2006Q3

REPORT INFORMATION
  Report Type: 
  Country: None (occurrence: None)
  Receive Date: 20060928
  Receipt Date: 20060922
  Transmission Date: 20061208
  Serious: Yes (Other)
  Sender: FDA-Public Use
  Company Number: 112342ISR

PATIENT
  Age: 72 Year
  Sex: Female

DRUGS (10)
  1. FOLINIC ACID [Suspect]
     Dosage: 785 MG (1 IN 2 WK) INTRAVENOUS
     Dates: start: 20060502, end: 20060822
  2. FLUOROURACIL [Suspect]
     Dosage: 5886 MG (1 IN 2 WK) INTRAVENOUS
     Route: 042
     Dates: start: 20060502, end: 20060822
  3. OXALIPLATIN [Suspect]
     Dosage: EVERY 2 WEEKS INTRAVENOUS
     Route: 042
     Dates: start: 20060502, end: 20060822
  4. ESOMEPRAZOLE MAGNESIUM [Concomitant]
  5. BISOPROLOL FUMARATE [Concomitant]
  6. MEDROXYPROGESTERONE ACETATE [Concomitant]
  7. LOPERAMIDE HYDROCHLORIDE [Concomitant]
  8. ZOLEDRONIC ACID [Concomitant]
  9. NADROPARIN CALCIUM [Concomitant]
  10. ASPIRIN [Concomitant]

REACTIONS (1)
  - PERIPHERAL SENSORY NEUROPATHY [None]
